FAERS Safety Report 20156638 (Version 2)
Quarter: 2022Q1

REPORT INFORMATION
  Report Type: Spontaneous
  Country: RU (occurrence: RU)
  Receive Date: 20211207
  Receipt Date: 20220221
  Transmission Date: 20220424
  Serious: Yes (Death, Other)
  Sender: FDA-Public Use
  Company Number: RU-AMGEN-RUSSP2021186218

PATIENT

DRUGS (1)
  1. ROMIPLOSTIM [Suspect]
     Active Substance: ROMIPLOSTIM
     Indication: Product used for unknown indication
     Dosage: UNK
     Route: 065

REACTIONS (9)
  - Intravascular haemolysis [Fatal]
  - Ruptured cerebral aneurysm [Fatal]
  - Procedural haemorrhage [Unknown]
  - Post procedural pneumonia [Unknown]
  - Portal vein thrombosis [Unknown]
  - Therapy partial responder [Unknown]
  - Therapy non-responder [Unknown]
  - Superficial vein thrombosis [Unknown]
  - Thrombocytosis [Unknown]
